FAERS Safety Report 7145430-2 (Version None)
Quarter: 2010Q4

REPORT INFORMATION
  Report Type: 
  Country: None (occurrence: None)
  Receive Date: 20101208
  Receipt Date: 20101129
  Transmission Date: 20110411
  Serious: Yes (Life-Threatening, Hospitalization)
  Sender: FDA-Public Use
  Company Number: FR-JNJFOC-20101106741

PATIENT
  Age: 80 Year
  Sex: Male

DRUGS (2)
  1. IXPRIM [Suspect]
     Indication: PAIN
     Route: 048
  2. PREVISCAN (FLUINDIONE) [Interacting]
     Indication: ARRHYTHMIA
     Route: 048

REACTIONS (3)
  - DRUG INTERACTION [None]
  - HAEMORRHAGE [None]
  - PROTHROMBIN TIME PROLONGED [None]
